FAERS Safety Report 20491766 (Version 1)
Quarter: 2022Q1

REPORT INFORMATION
  Report Type: Spontaneous
  Country: TW (occurrence: TW)
  Receive Date: 20220218
  Receipt Date: 20220218
  Transmission Date: 20220423
  Serious: Yes (Hospitalization, Other)
  Sender: FDA-Public Use
  Company Number: TW-AZURITY PHARMACEUTICALS, INC.-TW-2022ARB000203

PATIENT

DRUGS (2)
  1. TOPIRAMATE [Suspect]
     Active Substance: TOPIRAMATE
     Indication: Weight decreased
     Dosage: 100 MG, QD (BEFORE SLEEP)
  2. TOPIRAMATE [Suspect]
     Active Substance: TOPIRAMATE
     Dosage: 100 MG, QD (RESTARTED ON 4TH DAY BEFORE SLEEP)

REACTIONS (1)
  - Urinary retention [Recovered/Resolved]
